FAERS Safety Report 16233892 (Version 2)
Quarter: 2019Q3

REPORT INFORMATION
  Report Type: Spontaneous
  Country: JP (occurrence: JP)
  Receive Date: 20190424
  Receipt Date: 20190713
  Transmission Date: 20191004
  Serious: Yes (Other)
  Sender: FDA-Public Use
  Company Number: JP-AMGEN-JPNCT2019065305

PATIENT
  Age: 51 Year
  Sex: Male
  Weight: 59 kg

DRUGS (2)
  1. RANMARK [Suspect]
     Active Substance: DENOSUMAB
     Indication: BONE GIANT CELL TUMOUR
     Dosage: UNK, 10 CYCLES
     Route: 065
  2. DENOTAS [Concomitant]
     Active Substance: CALCIUM CARBONATE\CHOLECALCIFEROL\MAGNESIUM CARBONATE
     Indication: HYPOCALCAEMIA
     Dosage: 2 DOSAGE FORM, QD
     Route: 048
     Dates: end: 20150717

REACTIONS (3)
  - Spinal compression fracture [Recovered/Resolved]
  - Bone callus excessive [Unknown]
  - Pathological fracture [Unknown]

NARRATIVE: CASE EVENT DATE: 20150623
